FAERS Safety Report 14674443 (Version 1)
Quarter: 2018Q1

REPORT INFORMATION
  Report Type: Spontaneous
  Country: GB (occurrence: GB)
  Receive Date: 20180323
  Receipt Date: 20180323
  Transmission Date: 20180509
  Serious: Yes (Hospitalization)
  Sender: FDA-Public Use
  Company Number: GB-TEVA-2018-GB-874532

PATIENT
  Age: 62 Year
  Sex: Male

DRUGS (2)
  1. DABIGATRAN [Suspect]
     Active Substance: DABIGATRAN
     Indication: CHA2DS2-VASC ANNUAL STROKE RISK HIGH
     Dosage: 300 MILLIGRAM DAILY;
     Route: 048
  2. VERAPAMIL [Suspect]
     Active Substance: VERAPAMIL HYDROCHLORIDE
     Route: 048

REACTIONS (4)
  - Ataxia [Recovered/Resolved]
  - Headache [Recovered/Resolved]
  - Cerebral haemorrhage [Recovered/Resolved]
  - Incorrect dose administered [Unknown]
